FAERS Safety Report 20488322 (Version 1)
Quarter: 2022Q1

REPORT INFORMATION
  Report Type: Spontaneous
  Country: US (occurrence: US)
  Receive Date: 20220218
  Receipt Date: 20220218
  Transmission Date: 20220423
  Serious: Yes (Death)
  Sender: FDA-Public Use
  Company Number: US-MALLINCKRODT-T202200653

PATIENT
  Age: 50 Year
  Sex: Male

DRUGS (2)
  1. INOMAX [Suspect]
     Active Substance: NITRIC OXIDE
     Indication: Acute respiratory distress syndrome
     Dosage: 40 PPM VIA INHALATION
     Route: 055
  2. INOMAX [Suspect]
     Active Substance: NITRIC OXIDE
     Indication: COVID-19

REACTIONS (3)
  - COVID-19 [Fatal]
  - Product use issue [Unknown]
  - Product use in unapproved indication [Unknown]
